FAERS Safety Report 6681464-X (Version None)
Quarter: 2010Q2

REPORT INFORMATION
  Report Type: 
  Country: None (occurrence: None)
  Receive Date: 20100414
  Receipt Date: 20100403
  Transmission Date: 20101027
  Serious: Yes (Disabling)
  Sender: FDA-Public Use
  Company Number: PRIUSA2000006828

PATIENT
  Sex: Female
  Weight: 54.43 kg

DRUGS (3)
  1. LEVAQUIN [Suspect]
     Indication: SINUSITIS
     Route: 048
     Dates: start: 20000530, end: 20000606
  2. LEVAQUIN [Suspect]
     Indication: UPPER RESPIRATORY TRACT INFECTION
     Route: 048
     Dates: start: 20000530, end: 20000606
  3. ATENOLOL [Concomitant]
     Route: 048

REACTIONS (8)
  - ABASIA [None]
  - ANAEMIA [None]
  - BLOOD SODIUM DECREASED [None]
  - HYPOAESTHESIA [None]
  - MUSCLE SPASMS [None]
  - MYALGIA [None]
  - NAUSEA [None]
  - RASH [None]
